FAERS Safety Report 9337359 (Version 1)
Quarter: 2013Q2

REPORT INFORMATION
  Report Type: Spontaneous
  Country: ES (occurrence: ES)
  Receive Date: 20130607
  Receipt Date: 20130607
  Transmission Date: 20140414
  Serious: Yes (Other)
  Sender: FDA-Public Use
  Company Number: ES-GLAXOSMITHKLINE-B0894238A

PATIENT
  Sex: 0

DRUGS (4)
  1. MELPHALAN [Suspect]
     Indication: PROPHYLAXIS AGAINST TRANSPLANT REJECTION
     Route: 042
  2. BUSULFAN [Suspect]
     Indication: PROPHYLAXIS AGAINST TRANSPLANT REJECTION
     Route: 048
  3. BUSULFAN [Suspect]
     Route: 042
     Dates: start: 2006
  4. CLONAZEPAM [Concomitant]
     Indication: TOXICITY TO VARIOUS AGENTS
     Dosage: .03MGK PER DAY
     Route: 042

REACTIONS (1)
  - Engraftment syndrome [Unknown]
